FAERS Safety Report 20609826 (Version 1)
Quarter: 2022Q1

REPORT INFORMATION
  Report Type: Spontaneous
  Country: US (occurrence: US)
  Receive Date: 20220318
  Receipt Date: 20220318
  Transmission Date: 20220424
  Serious: Yes (Other)
  Sender: FDA-Public Use
  Company Number: US-AMGEN-USASP2022047096

PATIENT
  Age: 72 Year
  Sex: Female

DRUGS (3)
  1. EPOGEN [Suspect]
     Active Substance: ERYTHROPOIETIN
     Indication: Anaemia
     Dosage: 300-600 UNIT/KG, BID
     Route: 058
  2. DARBEPOETIN ALFA [Suspect]
     Active Substance: DARBEPOETIN ALFA
     Indication: Anaemia
     Dosage: ONCE WEEKLY
     Route: 058
  3. SODIUM FERRIC GLUCONATE COMPLEX [Concomitant]
     Active Substance: SODIUM FERRIC GLUCONATE COMPLEX
     Route: 042

REACTIONS (3)
  - Flap necrosis [Unknown]
  - Surgical failure [Unknown]
  - Haemoglobin decreased [Unknown]
